FAERS Safety Report 22273334 (Version 1)
Quarter: 2023Q2

REPORT INFORMATION
  Report Type: Spontaneous
  Country: ES (occurrence: ES)
  Receive Date: 20230502
  Receipt Date: 20230502
  Transmission Date: 20230721
  Serious: Yes (Life-Threatening, Hospitalization, Other)
  Sender: FDA-Public Use
  Company Number: ES-MLMSERVICE-20230417-4228052-1

PATIENT
  Age: 70 Year
  Sex: Male

DRUGS (3)
  1. CARBOPLATIN [Suspect]
     Active Substance: CARBOPLATIN
     Indication: Lung adenocarcinoma stage IV
     Dosage: 4 CYCLICAL
  2. PEMETREXED [Concomitant]
     Active Substance: PEMETREXED
     Indication: Lung adenocarcinoma stage IV
  3. PEMBROLIZUMAB [Concomitant]
     Active Substance: PEMBROLIZUMAB
     Indication: Lung adenocarcinoma stage IV

REACTIONS (7)
  - Metabolic acidosis [Recovered/Resolved]
  - Leukocytosis [Recovered/Resolved]
  - Coagulopathy [Recovered/Resolved]
  - Hyperlactacidaemia [Recovered/Resolved]
  - Acute kidney injury [Recovered/Resolved]
  - Type IV hypersensitivity reaction [Recovered/Resolved]
  - Procalcitonin increased [Recovered/Resolved]
